FAERS Safety Report 12930927 (Version 2)
Quarter: 2016Q4

REPORT INFORMATION
  Report Type: Spontaneous
  Country: US (occurrence: US)
  Receive Date: 20161110
  Receipt Date: 20161117
  Transmission Date: 20170207
  Serious: Yes (Hospitalization)
  Sender: FDA-Public Use
  Company Number: US-ASTRAZENECA-2016SF10112

PATIENT
  Age: 846 Month
  Sex: Female
  Weight: 86.2 kg

DRUGS (4)
  1. METFORMIN [Concomitant]
     Active Substance: METFORMIN HYDROCHLORIDE
     Indication: TYPE 2 DIABETES MELLITUS
     Route: 048
  2. GLIPIZIDE. [Concomitant]
     Active Substance: GLIPIZIDE
     Indication: TYPE 2 DIABETES MELLITUS
     Route: 048
  3. BYDUREON [Suspect]
     Active Substance: EXENATIDE
     Indication: TYPE 2 DIABETES MELLITUS
     Route: 058
     Dates: start: 20161005
  4. NIFEDIPINE. [Concomitant]
     Active Substance: NIFEDIPINE
     Indication: HYPERTENSION

REACTIONS (10)
  - Syncope [Unknown]
  - Stress [Unknown]
  - Feeling abnormal [Unknown]
  - Blood glucose fluctuation [Unknown]
  - Abdominal distension [Unknown]
  - Feeling abnormal [Unknown]
  - Abdominal pain [Unknown]
  - Needle issue [Unknown]
  - Vomiting [Unknown]
  - Injection site mass [Unknown]

NARRATIVE: CASE EVENT DATE: 201610
